FAERS Safety Report 26093941 (Version 1)
Quarter: 2025Q4

REPORT INFORMATION
  Report Type: Report from Study
  Country: GB (occurrence: GB)
  Receive Date: 20251126
  Receipt Date: 20251126
  Transmission Date: 20260117
  Serious: Yes (Other)
  Sender: TEVA
  Company Number: GB-TEVA-VS-3222900

PATIENT
  Age: 40 Year
  Sex: Female

DRUGS (3)
  1. COPAXONE [Suspect]
     Active Substance: GLATIRAMER ACETATE
     Indication: Multiple sclerosis
     Dosage: TIME INTERVAL: 0.33333333 WEEKS
     Route: 058
     Dates: start: 2019
  2. VENTOLIN [Concomitant]
     Active Substance: ALBUTEROL SULFATE
     Indication: Asthma
     Dosage: ASTHMA PUMPS
  3. DIHYDROCODEINE PHOSPHATE [Concomitant]
     Active Substance: DIHYDROCODEINE PHOSPHATE
     Indication: Product used for unknown indication

REACTIONS (16)
  - Dyspnoea [Unknown]
  - Erythema [Unknown]
  - Abdominal pain upper [Unknown]
  - Pain in extremity [Unknown]
  - Heart rate increased [Unknown]
  - Feeling hot [Unknown]
  - Chills [Unknown]
  - Pain [Unknown]
  - Tremor [Unknown]
  - Body temperature abnormal [Unknown]
  - Live birth [Unknown]
  - Premature delivery [Unknown]
  - Maternal exposure during pregnancy [Unknown]
  - Caesarean section [Unknown]
  - Nervousness [Unknown]
  - Feeling hot [Unknown]

NARRATIVE: CASE EVENT DATE: 20250101
